FAERS Safety Report 6886287-4 (Version None)
Quarter: 2010Q3

REPORT INFORMATION
  Report Type: 
  Country: None (occurrence: None)
  Receive Date: 20100729
  Receipt Date: 20090424
  Transmission Date: 20110219
  Serious: Yes (Other)
  Sender: FDA-Public Use
  Company Number: US-PFIZER INC-2009183288

PATIENT
  Sex: Female

DRUGS (2)
  1. CELEBREX [Suspect]
     Indication: PROCEDURAL PAIN
     Route: 048
  2. CELEBREX [Suspect]
     Indication: INFLAMMATION

REACTIONS (4)
  - FLUID RETENTION [None]
  - HEPATIC ENZYME ABNORMAL [None]
  - HYPERTENSION [None]
  - NAUSEA [None]
